FAERS Safety Report 4638199-4 (Version None)
Quarter: 2005Q2

REPORT INFORMATION
  Report Type: 
  Country: None (occurrence: None)
  Receive Date: 20050415
  Receipt Date: 20050407
  Transmission Date: 20051028
  Serious: Yes (Life-Threatening)
  Sender: FDA-Public Use
  Company Number: 1314819-2005-00006

PATIENT
  Age: 41 Year
  Sex: Female

DRUGS (2)
  1. GLADASE PAPAIN-UREA DEBRIDING OINTMENT 8.3X10(5)USP UNITS OF ACTIVITY, [Suspect]
     Indication: THERMAL BURN
     Dosage: 060 TOPICAL
     Route: 061
     Dates: start: 20050406
  2. GLADASE PAPAIN-UREA DEBRIDING OINTMENT 8.3X10 (5) USP UNITS OF ACTIVIT [Suspect]

REACTIONS (1)
  - ANAPHYLACTIC SHOCK [None]
